FAERS Safety Report 8195869-1 (Version None)
Quarter: 2012Q1

REPORT INFORMATION
  Report Type: 
  Country: None (occurrence: None)
  Receive Date: 20120308
  Receipt Date: 20120222
  Transmission Date: 20120608
  Serious: Yes (Hospitalization)
  Sender: FDA-Public Use
  Company Number: JP-ROCHE-1017456

PATIENT
  Sex: Female
  Weight: 64 kg

DRUGS (8)
  1. ISONIAZID [Concomitant]
     Route: 048
     Dates: start: 20110817
  2. PREDNISOLONE [Concomitant]
     Indication: RHEUMATOID ARTHRITIS
     Dosage: 5-7.5MG
     Route: 048
     Dates: start: 20100816
  3. OMEPRAZOLE [Concomitant]
     Route: 048
     Dates: start: 20110813
  4. METFORMIN HCL [Concomitant]
     Indication: DIABETES MELLITUS
     Route: 048
     Dates: start: 20110816
  5. ACTEMRA [Suspect]
     Indication: RHEUMATOID ARTHRITIS
     Route: 041
     Dates: start: 20110817, end: 20110912
  6. ACTONEL [Concomitant]
     Indication: OSTEOPOROSIS
     Route: 048
     Dates: start: 20110817
  7. PYDOXAL [Concomitant]
     Route: 048
     Dates: start: 20110817
  8. MOBIC [Concomitant]
     Indication: RHEUMATOID ARTHRITIS
     Route: 048
     Dates: start: 20110107

REACTIONS (2)
  - COLITIS ULCERATIVE [None]
  - ARTHRALGIA [None]
